FAERS Safety Report 9229300 (Version 1)
Quarter: 2013Q2

REPORT INFORMATION
  Report Type: Spontaneous
  Country: US (occurrence: US)
  Receive Date: 20130412
  Receipt Date: 20130412
  Transmission Date: 20140414
  Serious: No
  Sender: FDA-Public Use
  Company Number: US-ASTELLAS-2012US010700

PATIENT
  Sex: Male
  Weight: 100 kg

DRUGS (1)
  1. PROGRAF [Suspect]
     Indication: RENAL TRANSPLANT
     Dosage: 2 MG IN MORNING AND 2 MG IN EVENING
     Route: 065
     Dates: start: 2005

REACTIONS (1)
  - Insomnia [Not Recovered/Not Resolved]
